FAERS Safety Report 6475507-6 (Version None)
Quarter: 2009Q4

REPORT INFORMATION
  Report Type: 
  Country: None (occurrence: None)
  Receive Date: 20091204
  Receipt Date: 20091130
  Transmission Date: 20100525
  Serious: Yes (Death, Hospitalization)
  Sender: FDA-Public Use
  Company Number: US-ROCHE-672042

PATIENT
  Age: 18 Year
  Sex: Male

DRUGS (8)
  1. GANCICLOVIR SODIUM [Suspect]
     Indication: EPSTEIN-BARR VIRUS INFECTION
     Route: 065
  2. CIPROFLOXACIN [Suspect]
     Route: 001
  3. ACETAMINOPHEN [Suspect]
     Indication: EAR PAIN
     Route: 065
  4. AZITHROMYCIN [Suspect]
     Indication: INFECTION
     Route: 065
  5. MOXIFLOXACIN HCL [Suspect]
     Indication: EPSTEIN-BARR VIRUS INFECTION
     Route: 065
  6. VANCOMYCIN [Suspect]
     Indication: EPSTEIN-BARR VIRUS INFECTION
     Route: 065
  7. MEROPENEM [Suspect]
     Indication: EPSTEIN-BARR VIRUS INFECTION
     Route: 065
  8. AZTREONAM [Suspect]
     Indication: EPSTEIN-BARR VIRUS INFECTION
     Route: 065

REACTIONS (8)
  - CEREBRAL HAEMORRHAGE [None]
  - COAGULOPATHY [None]
  - DISSEMINATED INTRAVASCULAR COAGULATION [None]
  - EPSTEIN-BARR VIRUS INFECTION [None]
  - HYPERTRIGLYCERIDAEMIA [None]
  - MENTAL STATUS CHANGES [None]
  - MULTI-ORGAN FAILURE [None]
  - THROMBOCYTOPENIA [None]
